FAERS Safety Report 10517282 (Version 1)
Quarter: 2014Q4

REPORT INFORMATION
  Report Type: Spontaneous
  Country: US (occurrence: None)
  Receive Date: 20141003
  Receipt Date: 20141003
  Transmission Date: 20150528
  Serious: Yes (Hospitalization)
  Sender: FDA-Public Use
  Company Number: 1385786

PATIENT
  Age: 41 Year
  Sex: Male

DRUGS (3)
  1. RIAVIRIN [Suspect]
     Active Substance: RIBAVIRIN
     Indication: HEPATITIS C
     Dosage: 1200MG (600 MG, 2 IN 1D)
  2. PEGASYS [Suspect]
     Active Substance: PEGINTERFERON ALFA-2A
     Indication: HEPATITIS C
  3. SOVALDI [Suspect]
     Active Substance: SOFOSBUVIR
     Indication: HEPATITIS
     Dosage: UNKNOWN

REACTIONS (4)
  - Nausea [None]
  - Headache [None]
  - Myalgia [None]
  - Vomiting [None]
